FAERS Safety Report 19299075 (Version 1)
Quarter: 2021Q2

REPORT INFORMATION
  Report Type: Spontaneous
  Country: JP (occurrence: JP)
  Receive Date: 20210524
  Receipt Date: 20210524
  Transmission Date: 20210717
  Serious: Yes (Other)
  Sender: FDA-Public Use
  Company Number: NVSJ2021JP007802

PATIENT
  Age: 76 Year
  Sex: Male

DRUGS (1)
  1. IMATINIB. [Suspect]
     Active Substance: IMATINIB MESYLATE
     Indication: GASTROINTESTINAL STROMAL TUMOUR
     Dosage: UNK
     Route: 048

REACTIONS (3)
  - Dedifferentiated liposarcoma [Unknown]
  - Gastrointestinal stromal tumour [Unknown]
  - Malignant neoplasm progression [Unknown]
